FAERS Safety Report 6398176-2 (Version None)
Quarter: 2009Q4

REPORT INFORMATION
  Report Type: 
  Country: None (occurrence: None)
  Receive Date: 20091013
  Receipt Date: 20091008
  Transmission Date: 20100525
  Serious: Yes (Death, Hospitalization)
  Sender: FDA-Public Use
  Company Number: AU-BRISTOL-MYERS SQUIBB COMPANY-14774301

PATIENT
  Age: 79 Year
  Sex: Male
  Weight: 60 kg

DRUGS (9)
  1. BLINDED: BRIVANIB ALANINATE [Suspect]
     Indication: COLORECTAL CANCER METASTATIC
     Dosage: INTERRUPTED ON 09SEP09;RESTARTED ON 25SEP09. CYCLE :11
     Route: 048
     Dates: start: 20090625, end: 20091008
  2. CETUXIMAB [Suspect]
     Indication: COLORECTAL CANCER METASTATIC
     Dosage: CYCLE:11 25JUN09-25JUN09/680MG/ONE TIME ONLY 02JUL09-03SEP09;7SEP09-1OCT09/430 MG/WEEKLY
     Route: 042
     Dates: start: 20090625, end: 20091001
  3. BLINDED: PLACEBO [Suspect]
     Indication: COLORECTAL CANCER METASTATIC
     Dosage: INTERRUPTED ON 09SEP09.
     Route: 048
     Dates: start: 20090625, end: 20091008
  4. LISODUR [Concomitant]
     Indication: HYPERTENSION
     Dates: start: 20010101
  5. INSULIN MIXTARD [Concomitant]
     Indication: TYPE 2 DIABETES MELLITUS
     Dates: start: 20050101
  6. COLOXYL [Concomitant]
     Indication: CONSTIPATION
     Dates: start: 20090101
  7. CENTRUM [Concomitant]
     Indication: VITAMIN SUPPLEMENTATION
     Dates: start: 20050101
  8. PARAMAX [Concomitant]
     Indication: PAIN
     Dates: start: 20080101
  9. MAGMIN [Concomitant]
     Indication: BLOOD MAGNESIUM DECREASED
     Dates: start: 20090903

REACTIONS (3)
  - DEATH [None]
  - DIZZINESS [None]
  - FRACTURE [None]
